FAERS Safety Report 24713663 (Version 1)
Quarter: 2024Q4

REPORT INFORMATION
  Report Type: Spontaneous
  Country: US (occurrence: US)
  Receive Date: 20241209
  Receipt Date: 20241209
  Transmission Date: 20250115
  Serious: No
  Sender: REGENERON
  Company Number: US-REGENERON PHARMACEUTICALS, INC.-2024-046593

PATIENT
  Sex: Male

DRUGS (2)
  1. EYLEA [Suspect]
     Active Substance: AFLIBERCEPT
     Indication: Retinal vein occlusion
     Dosage: 2 MG, EVERY MONTH TO EVERY SIX WEEKS, OD (TREATMENT FOR OU); STRENGTH: 2MG/0.05ML; FORMULATION: VIAL
     Dates: start: 20211208, end: 20240228
  2. EYLEA [Suspect]
     Active Substance: AFLIBERCEPT
     Indication: Macular oedema
     Dosage: 2 MG, EVERY MONTH TO EVERY SIX WEEKS,INTO OS, STRENGTH: 2MG/0.05ML; FORMULATION: VIAL
     Dates: start: 20211208, end: 20240228

REACTIONS (2)
  - Visual impairment [Unknown]
  - Therapeutic product effect incomplete [Unknown]
